FAERS Safety Report 23247040 (Version 1)
Quarter: 2023Q4

REPORT INFORMATION
  Report Type: Spontaneous
  Country: US (occurrence: US)
  Receive Date: 20231130
  Receipt Date: 20231130
  Transmission Date: 20240110
  Serious: No
  Sender: FDA-Public Use
  Company Number: US-NOVOPROD-1019040

PATIENT
  Age: 53 Year
  Sex: Female

DRUGS (2)
  1. TRESIBA [Suspect]
     Active Substance: INSULIN DEGLUDEC
     Indication: Product used for unknown indication
     Dosage: 50 UNITS
     Route: 058
  2. RYBELSUS [Suspect]
     Active Substance: SEMAGLUTIDE
     Indication: Product used for unknown indication
     Route: 058

REACTIONS (1)
  - Nausea [Not Recovered/Not Resolved]

NARRATIVE: CASE EVENT DATE: 20221221
